FAERS Safety Report 8925612 (Version 1)
Quarter: 2012Q4

REPORT INFORMATION
  Report Type: 
  Country: GB (occurrence: GB)
  Receive Date: 20121126
  Receipt Date: 20121126
  Transmission Date: 20130627
  Serious: Yes (Hospitalization)
  Sender: FDA-Public Use
  Company Number: GB-PFIZER INC-2012292084

PATIENT
  Age: 47 Year
  Sex: Female

DRUGS (6)
  1. PHENYTOIN [Suspect]
     Indication: EPILEPSY
     Dosage: 100 mg twice a day and 200 mg at night.
     Route: 048
     Dates: end: 20121108
  2. CO-CODAMOL [Concomitant]
     Dosage: UNK
  3. HYOSCINE BUTYLBROMIDE [Concomitant]
     Dosage: UNK
  4. CARBAMAZEPINE [Concomitant]
     Dosage: UNK
  5. LAXIDO [Concomitant]
     Dosage: UNK
  6. OMEPRAZOLE [Concomitant]
     Dosage: UNK

REACTIONS (4)
  - Anaemia [Recovering/Resolving]
  - Fatigue [Unknown]
  - Dizziness [Unknown]
  - Haemoglobin decreased [Unknown]
